FAERS Safety Report 6199476-1 (Version None)
Quarter: 2009Q2

REPORT INFORMATION
  Report Type: 
  Country: None (occurrence: None)
  Receive Date: 20090522
  Receipt Date: 20090511
  Transmission Date: 20091009
  Serious: Yes (Hospitalization, Other)
  Sender: FDA-Public Use
  Company Number: DE-PFIZER INC-2009210505

PATIENT
  Age: 60 Year

DRUGS (3)
  1. AMPICILLIN AND SULBACTAM [Suspect]
     Indication: STAPHYLOCOCCAL SEPSIS
     Dosage: 750 MG, 2X/DAY
     Route: 042
     Dates: start: 20081231, end: 20090107
  2. AMPICILLIN AND SULBACTAM [Suspect]
     Dosage: 750 MG, 2X/DAY
     Route: 048
     Dates: start: 20090108, end: 20090110
  3. KLACID [Suspect]
     Indication: STAPHYLOCOCCAL SEPSIS
     Dosage: 500 MG, 2X/DAY
     Route: 048
     Dates: start: 20081231, end: 20090108

REACTIONS (1)
  - HEPATITIS ACUTE [None]
